FAERS Safety Report 15516316 (Version 1)
Quarter: 2018Q4

REPORT INFORMATION
  Report Type: Spontaneous
  Country: US (occurrence: US)
  Receive Date: 20181017
  Receipt Date: 20181017
  Transmission Date: 20190205
  Serious: No
  Sender: FDA-Public Use
  Company Number: None

PATIENT
  Age: 48 Year
  Sex: Female
  Weight: 60.75 kg

DRUGS (1)
  1. MIRENA [Suspect]
     Active Substance: LEVONORGESTREL
     Indication: HAEMORRHAGE
     Route: 067
     Dates: start: 20160901, end: 20180927

REACTIONS (5)
  - Abdominal distension [None]
  - Product complaint [None]
  - Flank pain [None]
  - Weight increased [None]
  - Ovarian cyst [None]

NARRATIVE: CASE EVENT DATE: 20180515
